FAERS Safety Report 7329729-2 (Version None)
Quarter: 2011Q1

REPORT INFORMATION
  Report Type: 
  Country: None (occurrence: None)
  Receive Date: 20110303
  Receipt Date: 20110225
  Transmission Date: 20110831
  Serious: Yes (Hospitalization)
  Sender: FDA-Public Use
  Company Number: US-GILEAD-2010-0034708

PATIENT
  Sex: Female

DRUGS (2)
  1. LETAIRIS [Suspect]
     Indication: PULMONARY ARTERIAL HYPERTENSION
     Route: 048
     Dates: start: 20101120, end: 20101125
  2. LETAIRIS [Suspect]
     Route: 048
     Dates: start: 20100502, end: 20100822

REACTIONS (1)
  - LIVER FUNCTION TEST ABNORMAL [None]
